FAERS Safety Report 8799928 (Version 1)
Quarter: 2012Q4

REPORT INFORMATION
  Report Type: Spontaneous
  Country: US (occurrence: None)
  Receive Date: 20120918
  Receipt Date: 20120918
  Transmission Date: 20130627
  Serious: No
  Sender: FDA-Public Use
  Company Number: None

PATIENT
  Age: 62 Year
  Sex: Female

DRUGS (1)
  1. XELODA [Suspect]
     Indication: MALIGNANT NEOPLASM OF COLON
     Route: 048
     Dates: start: 20120803, end: 20120913

REACTIONS (8)
  - Oral pain [None]
  - Oral discomfort [None]
  - Fatigue [None]
  - Skin discolouration [None]
  - Rash [None]
  - Pruritus [None]
  - Paraesthesia [None]
  - Hypoaesthesia [None]
